FAERS Safety Report 18495229 (Version 1)
Quarter: 2020Q4

REPORT INFORMATION
  Report Type: Spontaneous
  Country: US (occurrence: US)
  Receive Date: 20201112
  Receipt Date: 20201112
  Transmission Date: 20210114
  Serious: No
  Sender: FDA-Public Use
  Company Number: US-NODEN PHARMA DAC-NOD-2020-000001

PATIENT
  Age: 64 Year
  Sex: Female

DRUGS (4)
  1. BELSOMRA [Concomitant]
     Active Substance: SUVOREXANT
     Indication: PRODUCT USED FOR UNKNOWN INDICATION
     Dosage: UNK
     Route: 065
  2. ROSUVASTATIN. [Concomitant]
     Active Substance: ROSUVASTATIN
     Indication: PRODUCT USED FOR UNKNOWN INDICATION
     Dosage: UNK
     Route: 065
  3. ALISKIREN [Suspect]
     Active Substance: ALISKIREN
     Indication: RENAL FAILURE
     Dosage: 150 MILLIGRAM, 0.5 TIMES PER DAY
     Route: 048
     Dates: start: 20191115, end: 20191130
  4. AMLODIPINE [Concomitant]
     Active Substance: AMLODIPINE BESYLATE
     Indication: RENAL FAILURE
     Dosage: UNK
     Route: 065

REACTIONS (3)
  - Medication error [Unknown]
  - Off label use [Unknown]
  - Diarrhoea [Recovered/Resolved]

NARRATIVE: CASE EVENT DATE: 20191130
